FAERS Safety Report 24154079 (Version 2)
Quarter: 2024Q3

REPORT INFORMATION
  Report Type: Spontaneous
  Country: IT (occurrence: IT)
  Receive Date: 20240730
  Receipt Date: 20240801
  Transmission Date: 20241017
  Serious: Yes (Death, Hospitalization, Other)
  Sender: MERCK
  Company Number: None

PATIENT
  Age: 74 Year
  Sex: Male
  Weight: 70 kg

DRUGS (2)
  1. KEYTRUDA [Suspect]
     Active Substance: PEMBROLIZUMAB
     Indication: Lung carcinoma cell type unspecified stage IV
     Dosage: 200 MG EVERY 21 DAYS (Q3W) FIRST 4 CYCLES ASSOCIATED WITH CARBOPLATIN-PACLITAXEL
     Route: 042
     Dates: start: 20240215, end: 20240604
  2. ELIQUIS [Concomitant]
     Active Substance: APIXABAN
     Indication: Atrial fibrillation
     Dosage: 5 MG X 2 PER DAY
     Route: 048
     Dates: start: 20240319, end: 20240617

REACTIONS (4)
  - Interstitial lung disease [Fatal]
  - Enterocolitis haemorrhagic [Fatal]
  - Hypoxia [Fatal]
  - Delirium [Not Recovered/Not Resolved]

NARRATIVE: CASE EVENT DATE: 20240617
